FAERS Safety Report 4330519-3 (Version None)
Quarter: 2004Q1

REPORT INFORMATION
  Report Type: 
  Country: None (occurrence: None)
  Receive Date: 20040329
  Receipt Date: 20040315
  Transmission Date: 20041129
  Serious: Yes (Hospitalization)
  Sender: FDA-Public Use
  Company Number: 2004019971

PATIENT
  Sex: Female

DRUGS (1)
  1. NARDIL [Suspect]
     Indication: PANIC ATTACK
     Dosage: ORAL
     Route: 048
     Dates: start: 19880101

REACTIONS (13)
  - AGITATION [None]
  - ANOREXIA [None]
  - ANXIETY [None]
  - CONFUSIONAL STATE [None]
  - DEPERSONALISATION [None]
  - DEPRESSION [None]
  - DISSOCIATION [None]
  - DYSARTHRIA [None]
  - FATIGUE [None]
  - MEMORY IMPAIRMENT [None]
  - PANIC ATTACK [None]
  - PHARMACEUTICAL PRODUCT COMPLAINT [None]
  - SURGERY [None]
